FAERS Safety Report 7617099-1 (Version None)
Quarter: 2011Q3

REPORT INFORMATION
  Report Type: 
  Country: None (occurrence: None)
  Receive Date: 20110718
  Receipt Date: 20110705
  Transmission Date: 20111222
  Serious: Yes (Other)
  Sender: FDA-Public Use
  Company Number: US-BAYER-2011-024115

PATIENT
  Age: 58 Year
  Sex: Female

DRUGS (5)
  1. CYMBALTA [Concomitant]
  2. BACLOFEN [Concomitant]
  3. CORTICOSTEROID NOS [Concomitant]
  4. BETASERON [Suspect]
     Indication: MULTIPLE SCLEROSIS
     Dosage: 8 MIU QOD
     Dates: start: 20100920
  5. CONTRAST MEDIA [Concomitant]
     Indication: NUCLEAR MAGNETIC RESONANCE IMAGING
     Route: 042

REACTIONS (9)
  - MULTIPLE SCLEROSIS [None]
  - DISORIENTATION [None]
  - DISABILITY [None]
  - LOSS OF CONSCIOUSNESS [None]
  - PARAESTHESIA [None]
  - PAIN IN EXTREMITY [None]
  - DIPLOPIA [None]
  - BEDRIDDEN [None]
  - PROCEDURAL SITE REACTION [None]
